FAERS Safety Report 14333641 (Version 1)
Quarter: 2017Q4

REPORT INFORMATION
  Report Type: Spontaneous
  Country: GR (occurrence: GR)
  Receive Date: 20171228
  Receipt Date: 20171228
  Transmission Date: 20180321
  Serious: Yes (Death, Other)
  Sender: FDA-Public Use
  Company Number: PHHY2017GR188644

PATIENT
  Age: 17 Year
  Sex: Male

DRUGS (3)
  1. ETOPOSIDE. [Concomitant]
     Active Substance: ETOPOSIDE
     Indication: T-CELL TYPE ACUTE LEUKAEMIA
     Dosage: UNK, TRIPLE INTRATHECAL INFUSION CYCLE ON DAYS 1-5
     Route: 037
  2. CYCLOPHOSPHAMIDE. [Concomitant]
     Active Substance: CYCLOPHOSPHAMIDE
     Indication: T-CELL TYPE ACUTE LEUKAEMIA
     Dosage: UNK,  TRIPLE INTRATHECAL INFUSION CYCLE ON DAYS 1-5
     Route: 037
  3. NELARABINE [Suspect]
     Active Substance: NELARABINE
     Indication: T-CELL TYPE ACUTE LEUKAEMIA
     Dosage: UNK,  TRIPLE INTRATHECAL INFUSION CYCLE ON DAYS 7-11
     Route: 037

REACTIONS (6)
  - Dysaesthesia [Fatal]
  - Pain [Fatal]
  - Neurotoxicity [Fatal]
  - Neuropathy peripheral [Fatal]
  - Gait disturbance [Fatal]
  - Radiculopathy [Fatal]
